FAERS Safety Report 8304448-4 (Version None)
Quarter: 2012Q2

REPORT INFORMATION
  Report Type: 
  Country: None (occurrence: None)
  Receive Date: 20120423
  Receipt Date: 20120417
  Transmission Date: 20120825
  Serious: Yes (Other)
  Sender: FDA-Public Use
  Company Number: US-PFIZER INC-2012095616

PATIENT
  Sex: Female
  Weight: 116 kg

DRUGS (14)
  1. SEROQUEL [Concomitant]
     Dosage: UNK
  2. ZOLOFT [Suspect]
     Indication: DEPRESSION
     Dosage: 100 MG, 1X/DAY
     Route: 048
     Dates: end: 20100101
  3. HUMALOG [Concomitant]
     Indication: DIABETES MELLITUS
     Dosage: UNK
  4. ZOCOR [Concomitant]
     Dosage: UNK
  5. AMLODIPINE [Concomitant]
     Dosage: UNK
  6. TESSALON [Concomitant]
     Dosage: UNK, AS NEEDED
  7. LANTUS [Concomitant]
     Indication: DIABETES MELLITUS
     Dosage: UNK
  8. LASIX [Concomitant]
     Dosage: UNK
  9. LEVOTHYROXINE [Concomitant]
     Dosage: UNK
  10. LISINOPRIL [Concomitant]
     Dosage: UNK
  11. SYMBICORT [Concomitant]
     Dosage: UNK
  12. NEXIUM [Concomitant]
     Dosage: UNK
  13. VENTOLIN [Concomitant]
     Dosage: UNK
  14. TRICOR [Concomitant]
     Dosage: UNK

REACTIONS (7)
  - ANAEMIA [None]
  - NEUROENDOCRINE CARCINOMA [None]
  - OBESITY [None]
  - LUNG NEOPLASM [None]
  - MALAISE [None]
  - WEIGHT INCREASED [None]
  - COUGH [None]
